FAERS Safety Report 23690664 (Version 5)
Quarter: 2025Q2

REPORT INFORMATION
  Report Type: Report from Study
  Country: US (occurrence: US)
  Receive Date: 20240401
  Receipt Date: 20250404
  Transmission Date: 20250717
  Serious: Yes (Hospitalization, Other)
  Sender: TAKEDA
  Company Number: US-TAKEDA-2024TUS029633

PATIENT
  Sex: Female
  Weight: 22.67 kg

DRUGS (12)
  1. HUMAN IMMUNOGLOBULIN G\HYALURONIDASE RECOMBINANT HUMAN [Suspect]
     Active Substance: HUMAN IMMUNOGLOBULIN G\HYALURONIDASE (HUMAN RECOMBINANT)
     Indication: Congenital hypogammaglobulinaemia
     Dosage: 10 GRAM, Q4WEEKS
     Dates: start: 20231216
  2. ACETAMINOPHEN [Concomitant]
     Active Substance: ACETAMINOPHEN
  3. EPINEPHRINE [Concomitant]
     Active Substance: EPINEPHRINE
  4. SODIUM CHLORIDE [Concomitant]
     Active Substance: SODIUM CHLORIDE
  5. IBUPROFEN [Concomitant]
     Active Substance: IBUPROFEN
  6. JAKAFI [Concomitant]
     Active Substance: RUXOLITINIB
  7. ELIDEL [Concomitant]
     Active Substance: PIMECROLIMUS
  8. LIDOCAINE [Concomitant]
     Active Substance: LIDOCAINE
  9. CEPHALEXIN [Concomitant]
     Active Substance: CEPHALEXIN
  10. FLUCONAZOLE [Concomitant]
     Active Substance: FLUCONAZOLE
  11. DIPHENHYDRAMINE [Concomitant]
     Active Substance: DIPHENHYDRAMINE
  12. LEVOTHYROXINE SODIUM [Concomitant]
     Active Substance: LEVOTHYROXINE SODIUM

REACTIONS (5)
  - Pneumonia [Unknown]
  - Nasopharyngitis [Unknown]
  - Candida infection [Unknown]
  - Skin laceration [Unknown]
  - Eye infection [Unknown]
